FAERS Safety Report 9602933 (Version 2)
Quarter: 2013Q4

REPORT INFORMATION
  Report Type: Report from Study
  Country: KE (occurrence: KE)
  Receive Date: 20131007
  Receipt Date: 20131121
  Transmission Date: 20140711
  Serious: Yes (Hospitalization, Other)
  Sender: FDA-Public Use
  Company Number: KE-GILEAD-2013-0084475

PATIENT
  Age: 45 Year
  Sex: Male

DRUGS (15)
  1. TENOFOVIR DISOPROXIL FUMARATE [Suspect]
     Indication: HIV INFECTION
     Dosage: UNK
     Route: 065
     Dates: start: 20130815, end: 20130913
  2. TENOFOVIR DISOPROXIL FUMARATE [Suspect]
     Dosage: UNK
     Dates: end: 20131017
  3. EMTRICITABINE [Suspect]
     Indication: HIV INFECTION
     Dosage: UNK
     Route: 065
     Dates: start: 20130815, end: 20130913
  4. EMTRICITABINE [Suspect]
     Dosage: UNK
     Dates: end: 20131017
  5. EFAVIRENZ [Suspect]
     Indication: HIV INFECTION
     Dosage: UNK
     Dates: start: 20131017
  6. EFAVIRENZ [Suspect]
     Dosage: UNK
     Route: 065
     Dates: start: 20130815, end: 20130913
  7. RUSF [Suspect]
     Indication: PRODUCT USED FOR UNKNOWN INDICATION
     Dosage: UNK
     Route: 065
     Dates: start: 20130815, end: 20131103
  8. RUSF [Suspect]
     Dosage: UNK
  9. SEPTRIN [Suspect]
     Indication: PRODUCT USED FOR UNKNOWN INDICATION
     Dosage: 960 MG, QD
     Route: 065
     Dates: start: 20130801
  10. DICLOFENAC [Suspect]
     Indication: PRODUCT USED FOR UNKNOWN INDICATION
     Dosage: UNK
     Route: 061
     Dates: start: 20130905, end: 20130910
  11. COTRIMOXAZOLE [Concomitant]
     Dosage: UNK
  12. ANUSTAT [Concomitant]
     Dosage: UNK
     Dates: start: 20130829, end: 20130913
  13. PLASIL                             /00041901/ [Concomitant]
     Dosage: UNK
  14. FORTIFIED BLENDED FLOUR [Concomitant]
     Dosage: UNK
     Dates: start: 20130815, end: 20130913
  15. CIPROFLOXACIN [Concomitant]
     Indication: NEPHRITIS
     Dosage: UNK

REACTIONS (1)
  - Renal failure acute [Recovering/Resolving]
